FAERS Safety Report 10059210 (Version 1)
Quarter: 2014Q2

REPORT INFORMATION
  Report Type: Spontaneous
  Country: SE (occurrence: SE)
  Receive Date: 20140404
  Receipt Date: 20140404
  Transmission Date: 20141212
  Serious: Yes (Other)
  Sender: FDA-Public Use
  Company Number: SE-JNJFOC-20140316206

PATIENT
  Sex: 0

DRUGS (6)
  1. RISPERIDONE [Suspect]
     Indication: DEMENTIA
     Dosage: 1 MG IN THE MORNING AND  0.5 MG IN THE EVENING
     Route: 065
  2. RISPERIDONE [Suspect]
     Indication: DEMENTIA
     Route: 065
  3. RISPERIDONE [Suspect]
     Indication: DEMENTIA
     Route: 065
  4. GALANTAMINE [Suspect]
     Indication: DEMENTIA ALZHEIMER^S TYPE
     Route: 065
  5. GALANTAMINE [Suspect]
     Indication: DEMENTIA ALZHEIMER^S TYPE
     Route: 065
  6. GALANTAMINE [Suspect]
     Indication: DEMENTIA ALZHEIMER^S TYPE
     Route: 065

REACTIONS (17)
  - Cardiovascular disorder [Unknown]
  - Glaucoma [Unknown]
  - Mental disorder [Unknown]
  - Gastrointestinal disorder [Unknown]
  - Musculoskeletal disorder [Unknown]
  - Nervous system disorder [Unknown]
  - Urinary tract disorder [Unknown]
  - Metabolic disorder [Unknown]
  - Malnutrition [Unknown]
  - Respiratory disorder [Unknown]
  - Skin disorder [Unknown]
  - Libido increased [Unknown]
  - Fall [Unknown]
  - Foreign body [Unknown]
  - Therapeutic response changed [Unknown]
  - Off label use [Unknown]
  - Infection [Unknown]
